FAERS Safety Report 9754043 (Version 1)
Quarter: 2013Q4

REPORT INFORMATION
  Report Type: Spontaneous
  Country: US (occurrence: US)
  Receive Date: 20131213
  Receipt Date: 20131213
  Transmission Date: 20140711
  Serious: No
  Sender: FDA-Public Use
  Company Number: US-GLAXOSMITHKLINE-A1012171A

PATIENT
  Age: 66 Year
  Sex: Female

DRUGS (1)
  1. WALGREENS LOZENGE CHERRY 4 MG [Suspect]
     Indication: EX-TOBACCO USER
     Route: 048
     Dates: start: 201209, end: 2012

REACTIONS (3)
  - Oral discomfort [Not Recovered/Not Resolved]
  - Oral mucosal erythema [Unknown]
  - Product quality issue [Unknown]
